FAERS Safety Report 9500291 (Version 1)
Quarter: 2013Q3

REPORT INFORMATION
  Report Type: Spontaneous
  Country: CN (occurrence: CN)
  Receive Date: 20130905
  Receipt Date: 20130905
  Transmission Date: 20140515
  Serious: Yes (Other)
  Sender: FDA-Public Use
  Company Number: CN-BAYER-2013-105321

PATIENT
  Age: 50 Year
  Sex: Female

DRUGS (1)
  1. NIMOTOP [Suspect]

REACTIONS (2)
  - Angina pectoris [None]
  - Chest pain [None]
